FAERS Safety Report 5966934-1 (Version None)
Quarter: 2008Q4

REPORT INFORMATION
  Report Type: 
  Country: None (occurrence: None)
  Receive Date: 20081125
  Receipt Date: 20081027
  Transmission Date: 20090506
  Serious: No
  Sender: FDA-Public Use
  Company Number: US-AMGEN-KDL315652

PATIENT
  Sex: Female

DRUGS (1)
  1. ENBREL [Suspect]
     Indication: SPONDYLOARTHROPATHY
     Route: 058
     Dates: start: 20071024

REACTIONS (5)
  - ANKYLOSING SPONDYLITIS [None]
  - FEELING ABNORMAL [None]
  - INSOMNIA [None]
  - NASOPHARYNGITIS [None]
  - STRESS [None]
